FAERS Safety Report 15615323 (Version 3)
Quarter: 2018Q4

REPORT INFORMATION
  Report Type: Spontaneous
  Country: US (occurrence: US)
  Receive Date: 20181114
  Receipt Date: 20181213
  Transmission Date: 20190205
  Serious: Yes (Hospitalization, Other)
  Sender: FDA-Public Use
  Company Number: US-AMGEN-USASP2018159010

PATIENT
  Age: 64 Year
  Sex: Female

DRUGS (16)
  1. METOPROLOL TARTRATE. [Concomitant]
     Active Substance: METOPROLOL TARTRATE
     Dosage: 25 MG, UNK
  2. INCRUSE ELLIPTA [Concomitant]
     Active Substance: UMECLIDINIUM BROMIDE
     Dosage: 62.5 MCG
  3. VALTREX [Concomitant]
     Active Substance: VALACYCLOVIR HYDROCHLORIDE
     Dosage: 500 MG, UNK
  4. PROLIA [Suspect]
     Active Substance: DENOSUMAB
     Indication: OSTEOPOROSIS
     Dosage: 50 MG, UNK
     Route: 065
     Dates: start: 20181106
  5. PROAIR HFA [Concomitant]
     Active Substance: ALBUTEROL SULFATE
  6. NASONEX [Concomitant]
     Active Substance: MOMETASONE FUROATE
     Dosage: 50 MUG, UNK
  7. ATORVASTATIN [Concomitant]
     Active Substance: ATORVASTATIN
     Dosage: 20 MG, UNK
  8. PROTONIX [Concomitant]
     Active Substance: PANTOPRAZOLE SODIUM
  9. ZOFRAN [Concomitant]
     Active Substance: ONDANSETRON HYDROCHLORIDE
     Dosage: 4 MG, UNK
  10. BENICAR HCT [Concomitant]
     Active Substance: HYDROCHLOROTHIAZIDE\OLMESARTAN MEDOXOMIL
  11. SINGULAIR [Concomitant]
     Active Substance: MONTELUKAST SODIUM
     Dosage: 10 MG, UNK
  12. CYMBALTA [Concomitant]
     Active Substance: DULOXETINE HYDROCHLORIDE
     Dosage: 60 MG, UNK
  13. PIROXICAM. [Concomitant]
     Active Substance: PIROXICAM
     Dosage: 2.5 MG, UNK
  14. REQUIP [Concomitant]
     Active Substance: ROPINIROLE HYDROCHLORIDE
     Dosage: 5 MG, UNK
  15. IPRATROPIUM [Concomitant]
     Active Substance: IPRATROPIUM
  16. BREO ELLIPTA [Concomitant]
     Active Substance: FLUTICASONE FUROATE\VILANTEROL TRIFENATATE
     Dosage: 200/25 INHALER

REACTIONS (8)
  - Abdominal discomfort [Unknown]
  - Cyanosis [Unknown]
  - Acute kidney injury [Unknown]
  - Off label use [Unknown]
  - Diarrhoea [Unknown]
  - Nausea [Unknown]
  - Vomiting [Unknown]
  - Back pain [Unknown]

NARRATIVE: CASE EVENT DATE: 20181106
